FAERS Safety Report 23452605 (Version 5)
Quarter: 2024Q1

REPORT INFORMATION
  Report Type: Spontaneous
  Country: CO (occurrence: CO)
  Receive Date: 20240129
  Receipt Date: 20240229
  Transmission Date: 20240410
  Serious: No
  Sender: FDA-Public Use
  Company Number: CO-PFIZER INC-PV202400002769

PATIENT
  Age: 13 Year
  Sex: Female

DRUGS (1)
  1. GENOTROPIN [Suspect]
     Active Substance: SOMATROPIN
     Dosage: 1.8 MG, DAILY
     Route: 058
     Dates: start: 20200805, end: 20240102

REACTIONS (5)
  - Drug dose omission by device [Unknown]
  - Poor quality device used [Unknown]
  - Device breakage [Unknown]
  - Device mechanical issue [Unknown]
  - Device information output issue [Unknown]
